FAERS Safety Report 4388980-4 (Version None)
Quarter: 2004Q2

REPORT INFORMATION
  Report Type: 
  Country: None (occurrence: None)
  Receive Date: 20040628
  Receipt Date: 20040609
  Transmission Date: 20050107
  Serious: Yes (Other)
  Sender: FDA-Public Use
  Company Number: 6009268

PATIENT
  Age: 70 Year
  Sex: Female

DRUGS (8)
  1. ALLOPURINOL [Suspect]
     Indication: GOUT
     Dosage: 300 MG
     Route: 048
     Dates: start: 19990205, end: 19990206
  2. ALLOPURINOL [Suspect]
     Indication: GOUT
     Dosage: 300 MG
     Route: 048
     Dates: start: 19990210
  3. METFORMIN HCL [Suspect]
     Dosage: 2.5 GM
     Route: 048
     Dates: end: 19990205
  4. TICLID [Suspect]
     Dosage: 1 GM
     Route: 048
     Dates: start: 19990202, end: 19990205
  5. PRINIVIL [Suspect]
     Indication: ESSENTIAL HYPERTENSION
     Dosage: 5 MG
     Route: 048
     Dates: start: 19990203, end: 19990205
  6. GLYBURIDE [Concomitant]
  7. FUROSEMIDE [Concomitant]
  8. DIGOXIN [Concomitant]

REACTIONS (5)
  - NAUSEA [None]
  - RASH ERYTHEMATOUS [None]
  - RASH MACULO-PAPULAR [None]
  - RENAL IMPAIRMENT [None]
  - VOMITING [None]
